FAERS Safety Report 12667420 (Version 5)
Quarter: 2017Q2

REPORT INFORMATION
  Report Type: Spontaneous
  Country: US (occurrence: US)
  Receive Date: 20160819
  Receipt Date: 20170428
  Transmission Date: 20170830
  Serious: No
  Sender: FDA-Public Use
  Company Number: US-PFIZER INC-2016389279

PATIENT
  Age: 49 Year
  Sex: Male

DRUGS (4)
  1. SUTENT [Suspect]
     Active Substance: SUNITINIB MALATE
     Indication: RENAL CANCER
     Dosage: 50 MG, CYCLIC (DAILY FOR 14 DAYS)
     Route: 048
     Dates: start: 20160616
  2. SUTENT [Suspect]
     Active Substance: SUNITINIB MALATE
     Dosage: 50 MG, CYCLIC (14 DAYS ON, 7 OFF)
     Route: 048
     Dates: start: 20160717
  3. SUTENT [Suspect]
     Active Substance: SUNITINIB MALATE
     Dosage: 50 MG, CYCLIC (14 DAYS ON 7 DAYS OFF)
     Route: 048
     Dates: start: 20160618
  4. SUTENT [Suspect]
     Active Substance: SUNITINIB MALATE
     Dosage: 50 MG, CYCLIC (DAILY FOR 14 DAYS)
     Route: 048
     Dates: start: 20160617

REACTIONS (8)
  - Skin ulcer [Unknown]
  - Fatigue [Unknown]
  - Yellow skin [Unknown]
  - Diarrhoea [Unknown]
  - Pruritus [Unknown]
  - Rash [Unknown]
  - Nasal discomfort [Unknown]
  - Abdominal pain upper [Unknown]

NARRATIVE: CASE EVENT DATE: 20160815
